FAERS Safety Report 9906264 (Version 1)
Quarter: 2014Q1

REPORT INFORMATION
  Report Type: Report from Study
  Country: JP (occurrence: JP)
  Receive Date: 20140218
  Receipt Date: 20140218
  Transmission Date: 20141002
  Serious: Yes (Death, Hospitalization, Other)
  Sender: FDA-Public Use
  Company Number: JP-BAYER-2014-025346

PATIENT
  Age: 56 Year
  Sex: Female
  Weight: 50 kg

DRUGS (12)
  1. STIVARGA [Suspect]
     Indication: COLON CANCER
     Dosage: 160 MG, DAILY (FOR 3 WEEKS ON  AND 1 WEEK OFF)
     Route: 048
     Dates: start: 20131017, end: 20131031
  2. HIRUDOID [Concomitant]
     Indication: DRUG TOXICITY PROPHYLAXIS
     Dosage: UNK
     Route: 061
  3. DERMOVATE [Concomitant]
     Indication: DRUG TOXICITY PROPHYLAXIS
     Dosage: UNK
     Route: 061
  4. KERATINAMIN [Concomitant]
     Indication: DRUG TOXICITY PROPHYLAXIS
     Dosage: UNK
     Route: 061
  5. BESOFTEN [Concomitant]
     Dosage: UNK
     Route: 062
  6. PURSENNID [Concomitant]
     Indication: CONSTIPATION PROPHYLAXIS
     Dosage: DAILY DOSE 24 MG
     Route: 048
  7. LANSOPRAZOLE [Concomitant]
     Dosage: DAILY DOSE 30 MG
     Route: 048
     Dates: end: 20131105
  8. LASIX [Concomitant]
     Dosage: DAILY DOSE 20 MG
     Route: 048
     Dates: end: 20131105
  9. BLOPRESS [Concomitant]
     Dosage: DAILY DOSE 8 MG
     Route: 048
     Dates: end: 20131105
  10. LENDORMIN [Concomitant]
     Dosage: DAILY DOSE .25 MG
     Route: 048
     Dates: end: 20131105
  11. MAGLAX [Concomitant]
     Indication: CONSTIPATION PROPHYLAXIS
     Dosage: DAILY DOSE 750 MG
     Route: 048
     Dates: end: 20131105
  12. BENZALIN [Concomitant]
     Dosage: DAILY DOSE 5 MG
     Route: 048
     Dates: start: 20131031, end: 20131105

REACTIONS (10)
  - Palmar-plantar erythrodysaesthesia syndrome [Unknown]
  - Hepatic function abnormal [Not Recovered/Not Resolved]
  - Dysphonia [Recovering/Resolving]
  - Constipation [Not Recovered/Not Resolved]
  - Pyrexia [Recovered/Resolved]
  - Blood thyroid stimulating hormone increased [Recovering/Resolving]
  - Rash [Recovering/Resolving]
  - Colon cancer [Fatal]
  - Malaise [Not Recovered/Not Resolved]
  - Dyspnoea [Not Recovered/Not Resolved]
